FAERS Safety Report 14944624 (Version 1)
Quarter: 2018Q2

REPORT INFORMATION
  Report Type: Spontaneous
  Country: DE (occurrence: DE)
  Receive Date: 20180529
  Receipt Date: 20180529
  Transmission Date: 20180711
  Serious: Yes (Other)
  Sender: FDA-Public Use
  Company Number: DE-AUROBINDO-AUR-APL-2018-026962

PATIENT
  Age: 56 Year
  Sex: Male

DRUGS (1)
  1. AMOXI-CLAVULAN AUROBINDO FILMTABLETTEN 500/125MG [Suspect]
     Active Substance: AMOXICILLIN\CLAVULANATE POTASSIUM
     Indication: BACTERIAL INFECTION
     Dosage: 1 DOSAGE FORM, 3 TIMES A DAY
     Route: 048
     Dates: start: 20180502, end: 20180509

REACTIONS (2)
  - Depression suicidal [Unknown]
  - Fatigue [Unknown]
